FAERS Safety Report 17149372 (Version 1)
Quarter: 2019Q4

REPORT INFORMATION
  Report Type: Spontaneous
  Country: SE (occurrence: SE)
  Receive Date: 20191213
  Receipt Date: 20191213
  Transmission Date: 20200122
  Serious: Yes (Hospitalization)
  Sender: FDA-Public Use
  Company Number: SE-TEVA-2019-SE-1148986

PATIENT
  Age: 49 Year
  Sex: Female

DRUGS (3)
  1. PROPAVAN [Suspect]
     Active Substance: PROPIOMAZINE
     Dosage: ^2 ST PROPAVAN^
     Route: 048
     Dates: start: 20180123, end: 20180123
  2. TRAMADOL. [Suspect]
     Active Substance: TRAMADOL
     Dosage: 300 MILLIGRAM
     Route: 048
     Dates: start: 20180123, end: 20180123
  3. LERGIGAN (PROMETHAZINE HYDROCHLORIDE) [Suspect]
     Active Substance: PROMETHAZINE HYDROCHLORIDE
     Dosage: ^4-5 ST^
     Route: 048
     Dates: start: 20180123, end: 20180123

REACTIONS (2)
  - Intentional overdose [Unknown]
  - Intentional self-injury [Unknown]

NARRATIVE: CASE EVENT DATE: 20180123
